FAERS Safety Report 21686313 (Version 1)
Quarter: 2022Q4

REPORT INFORMATION
  Report Type: Spontaneous
  Country: KR (occurrence: KR)
  Receive Date: 20221206
  Receipt Date: 20221206
  Transmission Date: 20230113
  Serious: Yes (Hospitalization, Other)
  Sender: FDA-Public Use
  Company Number: KR-SUN PHARMACEUTICAL INDUSTRIES LTD-2022RR-367063

PATIENT
  Age: 52 Year
  Sex: Male

DRUGS (4)
  1. CLOPIDOGREL [Suspect]
     Active Substance: CLOPIDOGREL BISULFATE
     Indication: Aplastic anaemia
     Dosage: 75 MILLIGRAM, DAILY
     Route: 065
  2. CLOPIDOGREL [Suspect]
     Active Substance: CLOPIDOGREL BISULFATE
     Dosage: 300 MILLIGRAM, UNK
     Route: 065
  3. ASPIRIN [Suspect]
     Active Substance: ASPIRIN
     Indication: Aplastic anaemia
     Dosage: 100 MILLIGRAM, DAILY
     Route: 065
  4. OXYMETHOLONE [Concomitant]
     Active Substance: OXYMETHOLONE
     Indication: Aplastic anaemia
     Dosage: 100 MILLIGRAM, DAILY
     Route: 065

REACTIONS (3)
  - Thrombocytopenia [Unknown]
  - Vascular stent thrombosis [Unknown]
  - Vascular stent occlusion [Unknown]
